FAERS Safety Report 16587527 (Version 1)
Quarter: 2019Q3

REPORT INFORMATION
  Report Type: Spontaneous
  Country: GB (occurrence: GB)
  Receive Date: 20190717
  Receipt Date: 20190717
  Transmission Date: 20191004
  Serious: Yes (Disabling)
  Sender: FDA-Public Use
  Company Number: GB-MYLANLABS-2019M1067012

PATIENT
  Age: 82 Year
  Sex: Male
  Weight: 96 kg

DRUGS (12)
  1. FUCIBET [Concomitant]
     Dosage: 2 DOSAGE FORM, QD,APPLY.
     Dates: start: 20190124
  2. ZEROBASE                           /00103901/ [Concomitant]
     Dosage: UNK, PRN,APPLY AS NEEDED.
     Dates: start: 20190124
  3. PREDNISOLONE. [Concomitant]
     Active Substance: PREDNISOLONE
     Dosage: 8 DOSAGE FORM, QD,TAKE 8 TABS ONCE DAILY FOR 5 DAYS THEN REDUCE .
     Dates: start: 20190102, end: 20190103
  4. LORATADINE. [Concomitant]
     Active Substance: LORATADINE
     Dosage: 1 DOSAGE FORM, QD
     Dates: start: 20190102
  5. LISINOPRIL. [Concomitant]
     Active Substance: LISINOPRIL
     Dosage: 1 DOSAGE FORM, QD
     Dates: start: 20190124
  6. LEVOTHYROXINE. [Concomitant]
     Active Substance: LEVOTHYROXINE
     Dosage: 1 DOSAGE FORM, AM,EACH MORNING. (QD)
     Dates: start: 20180921
  7. CANDESARTAN. [Concomitant]
     Active Substance: CANDESARTAN
     Dosage: 1 DOSAGE FORM, PM, AT NIGHT.(QD)
     Dates: start: 20190102, end: 20190116
  8. DOXAZOSIN [Suspect]
     Active Substance: DOXAZOSIN MESYLATE
     Indication: PRODUCT USED FOR UNKNOWN INDICATION
     Dosage: 1 MILLIGRAM, QD
     Dates: start: 20190116
  9. RAMIPRIL. [Concomitant]
     Active Substance: RAMIPRIL
     Dosage: 1 DOSAGE FORM, QD
     Dates: start: 20180517, end: 20190102
  10. ATORVASTATIN [Concomitant]
     Active Substance: ATORVASTATIN
     Dosage: 1 DOSAGE FORM, PM, AT NIGHT. (QD)
     Dates: start: 20181207
  11. INDAPAMIDE. [Concomitant]
     Active Substance: INDAPAMIDE
     Dosage: 1 DOSAGE FORM, AM, EACH MORNING. (QD)
     Dates: start: 20180517
  12. HYDROXOCOBALAMIN [Concomitant]
     Active Substance: HYDROXOCOBALAMIN
     Dosage: UNK,USE AS DIRECTED.
     Dates: start: 20181203

REACTIONS (1)
  - Glossodynia [Recovered/Resolved]

NARRATIVE: CASE EVENT DATE: 20190128
